FAERS Safety Report 8847790 (Version 1)
Quarter: 2012Q4

REPORT INFORMATION
  Report Type: 
  Country: FR (occurrence: FR)
  Receive Date: 20121018
  Receipt Date: 20121018
  Transmission Date: 20130627
  Serious: Yes (Death)
  Sender: FDA-Public Use
  Company Number: FR-SANOFI-AVENTIS-2012SA074688

PATIENT
  Age: 73 Year
  Sex: Female

DRUGS (3)
  1. LOVENOX [Suspect]
     Indication: INTESTINAL ISCHEMIA
     Route: 058
     Dates: start: 20120519, end: 20120526
  2. FRAGMIN [Suspect]
     Indication: INTESTINAL ISCHEMIA
     Route: 065
     Dates: start: 20120516, end: 20120518
  3. HEPARIN SODIUM [Suspect]
     Indication: DRUG USE FOR UNKNOWN INDICATION
     Route: 042
     Dates: start: 20120527

REACTIONS (1)
  - Heparin-induced thrombocytopenia [Fatal]
